FAERS Safety Report 9375031 (Version 1)
Quarter: 2013Q2

REPORT INFORMATION
  Report Type: Spontaneous
  Country: US (occurrence: US)
  Receive Date: 20130628
  Receipt Date: 20130628
  Transmission Date: 20140414
  Serious: No
  Sender: FDA-Public Use
  Company Number: US-009507513-1306USA013292

PATIENT
  Sex: Female

DRUGS (2)
  1. NASONEX [Suspect]
     Indication: SINUS DISORDER
     Dosage: TWO PUMPS IN LEFT SIDE OF NOSTRIL, QD
     Route: 045
     Dates: start: 2010
  2. NASONEX [Suspect]
     Indication: PROPHYLAXIS

REACTIONS (3)
  - Drug dose omission [Unknown]
  - Product quality issue [Unknown]
  - No adverse event [Unknown]
